FAERS Safety Report 4994525-8 (Version None)
Quarter: 2006Q1

REPORT INFORMATION
  Report Type: 
  Country: None (occurrence: None)
  Receive Date: 20060313
  Receipt Date: 20051129
  Transmission Date: 20060701
  Serious: No
  Sender: FDA-Public Use
  Company Number: 2005-BP-186682BP

PATIENT
  Age: 67 Year
  Sex: Male

DRUGS (5)
  1. SPIRIVA [Suspect]
     Indication: CHRONIC OBSTRUCTIVE PULMONARY DISEASE
     Dosage: 18 MCG (18 MCG,1 IN 1 D),IH
     Dates: start: 20050601
  2. SPIRIVA [Suspect]
  3. QVAR 80 [Concomitant]
  4. CEPHALEXIN [Concomitant]
  5. LOVASTATIN [Concomitant]

REACTIONS (5)
  - COUGH [None]
  - INFECTION [None]
  - NASOPHARYNGITIS [None]
  - RHINORRHOEA [None]
  - WHEEZING [None]
